FAERS Safety Report 9078817 (Version 1)
Quarter: 2013Q1

REPORT INFORMATION
  Report Type: Spontaneous
  Country: GB (occurrence: GB)
  Receive Date: 20130130
  Receipt Date: 20130130
  Transmission Date: 20140127
  Serious: Yes (Other)
  Sender: FDA-Public Use
  Company Number: GB-UCBSA-076472

PATIENT
  Age: 28 Year
  Sex: Male

DRUGS (2)
  1. KEPPRA [Suspect]
     Dosage: TOTAL DAILY DOSE:1000 (UNITS UNSPECIFIED)
  2. TEGRETOL [Concomitant]
     Dosage: TOTAL DAILY DOSE:1600

REACTIONS (2)
  - Cerebrosclerosis [Unknown]
  - Convulsion [Unknown]
